FAERS Safety Report 10564355 (Version 1)
Quarter: 2014Q4

REPORT INFORMATION
  Report Type: Spontaneous
  Country: US (occurrence: US)
  Receive Date: 20141104
  Receipt Date: 20141104
  Transmission Date: 20150529
  Serious: Yes (Death, Other)
  Sender: FDA-Public Use
  Company Number: US-GILEAD-2014-0121062

PATIENT
  Age: 84 Year
  Sex: Female

DRUGS (10)
  1. TRAMADOL [Concomitant]
     Active Substance: TRAMADOL
  2. LETAIRIS [Suspect]
     Active Substance: AMBRISENTAN
     Dosage: 5 MG, QD
     Route: 065
     Dates: start: 20110429
  3. GABAPENTIN. [Concomitant]
     Active Substance: GABAPENTIN
  4. SIMVASTATIN. [Concomitant]
     Active Substance: SIMVASTATIN
  5. ALENDRONATE [Concomitant]
     Active Substance: ALENDRONATE SODIUM
  6. LEVOTHYROXINE [Concomitant]
     Active Substance: LEVOTHYROXINE
  7. ARICEPT [Concomitant]
     Active Substance: DONEPEZIL HYDROCHLORIDE
  8. OMEPRAZOLE. [Concomitant]
     Active Substance: OMEPRAZOLE
  9. WARFARIN [Concomitant]
     Active Substance: WARFARIN
  10. LEXAPRO [Concomitant]
     Active Substance: ESCITALOPRAM OXALATE

REACTIONS (1)
  - Atrial fibrillation [Fatal]
